FAERS Safety Report 6142482-3 (Version None)
Quarter: 2009Q2

REPORT INFORMATION
  Report Type: 
  Country: None (occurrence: None)
  Receive Date: 20090403
  Receipt Date: 20090324
  Transmission Date: 20091009
  Serious: Yes (Other)
  Sender: FDA-Public Use
  Company Number: CN-PFIZER INC-2009165730

PATIENT

DRUGS (2)
  1. VFEND [Suspect]
     Indication: PULMONARY MYCOSIS
     Dosage: UNK
     Route: 048
     Dates: start: 20090127, end: 20090202
  2. VFEND [Suspect]
     Dosage: UNK
     Route: 042
     Dates: start: 20090127, end: 20090202

REACTIONS (5)
  - LENS DISORDER [None]
  - MYDRIASIS [None]
  - PUPILLARY LIGHT REFLEX TESTS ABNORMAL [None]
  - RETINAL DETACHMENT [None]
  - VISION BLURRED [None]
